FAERS Safety Report 16543457 (Version 1)
Quarter: 2019Q3

REPORT INFORMATION
  Report Type: Spontaneous
  Country: DK (occurrence: DK)
  Receive Date: 20190709
  Receipt Date: 20190709
  Transmission Date: 20191004
  Serious: Yes (Disabling)
  Sender: FDA-Public Use
  Company Number: DK-ACCORD-137427

PATIENT
  Age: 54 Year
  Sex: Male

DRUGS (9)
  1. SIMVASTATIN SANDOZ [Concomitant]
     Active Substance: SIMVASTATIN
     Indication: HYPERCHOLESTEROLAEMIA
     Dosage: STRENGTH: 40 MG
     Route: 048
     Dates: start: 20120612
  2. PREGABALIN SANDOZ [Concomitant]
     Active Substance: PREGABALIN
     Indication: ANXIETY
     Dosage: DOSE: 1  TOMORROW, 2 EVENING. STRENGTH: 150 MG.
     Route: 048
     Dates: start: 20170213
  3. CLOZAPINE ACCORD [Suspect]
     Active Substance: CLOZAPINE
     Indication: SCHIZOPHRENIA
     Dosage: DOSAGE: 2 TABLETS TOMORROW, 3 TABLETS EVENING. STRENGTH: 100 MG.
     Route: 048
     Dates: start: 20180308
  4. ACETYLSALICYLIC ACID [Concomitant]
     Active Substance: ASPIRIN
     Indication: THROMBOSIS PROPHYLAXIS
     Dosage: STRENGTH: 75 MG
     Route: 048
     Dates: start: 20120612
  5. UNIKALK [Concomitant]
     Indication: MINERAL SUPPLEMENTATION
     Dosage: STRENGTH: 400 MG + 19 MICROGRAM
     Route: 048
     Dates: start: 20171101
  6. DIPRODERM [Concomitant]
     Active Substance: BETAMETHASONE DIPROPIONATE
     Indication: ECZEMA
     Dosage: STRENGTH: 0.05 %
     Route: 003
     Dates: start: 20150611
  7. JARDIANCE [Concomitant]
     Active Substance: EMPAGLIFLOZIN
     Indication: TYPE 2 DIABETES MELLITUS
     Dosage: STRENGTH: 10 MG
     Route: 048
     Dates: start: 20180314
  8. BISOPROLOL STADA [Concomitant]
     Indication: HYPERTENSION
     Dosage: STRENGTH: 5 MG
     Route: 048
     Dates: start: 20150424
  9. METFORMIN [Concomitant]
     Active Substance: METFORMIN HYDROCHLORIDE
     Indication: TYPE 2 DIABETES MELLITUS
     Dosage: STRENGTH: 500 MG
     Route: 048
     Dates: start: 20170623

REACTIONS (2)
  - Arrhythmia [Recovering/Resolving]
  - Dysphemia [Unknown]

NARRATIVE: CASE EVENT DATE: 2019
